FAERS Safety Report 21057357 (Version 3)
Quarter: 2022Q3

REPORT INFORMATION
  Report Type: Spontaneous
  Country: JP (occurrence: JP)
  Receive Date: 20220708
  Receipt Date: 20220809
  Transmission Date: 20221026
  Serious: Yes (Other)
  Sender: FDA-Public Use
  Company Number: JP-JNJFOC-20220702238

PATIENT
  Age: 63 Year
  Sex: Female

DRUGS (3)
  1. UPTRAVI [Suspect]
     Active Substance: SELEXIPAG
     Indication: Pulmonary arterial hypertension
     Route: 048
  2. WARFARIN [Suspect]
     Active Substance: WARFARIN
     Indication: Thrombosis prophylaxis
     Route: 065
  3. EDOXABAN [Concomitant]
     Active Substance: EDOXABAN
     Indication: Thrombosis prophylaxis
     Route: 065

REACTIONS (4)
  - Cerebral artery embolism [Unknown]
  - Cerebral infarction [Unknown]
  - Embolic stroke [Unknown]
  - N-terminal prohormone brain natriuretic peptide increased [Unknown]
